FAERS Safety Report 7682992-0 (Version None)
Quarter: 2011Q3

REPORT INFORMATION
  Report Type: 
  Country: None (occurrence: None)
  Receive Date: 20110812
  Receipt Date: 20110812
  Transmission Date: 20111222
  Serious: Yes (Other)
  Sender: FDA-Public Use
  Company Number: None

PATIENT
  Sex: Male
  Weight: 81.6475 kg

DRUGS (1)
  1. WELCHOL [Suspect]
     Indication: BLOOD CHOLESTEROL
     Dosage: 6 DAILY
     Dates: start: 20110622, end: 20110714

REACTIONS (3)
  - FATIGUE [None]
  - DECREASED APPETITE [None]
  - BONE PAIN [None]
